FAERS Safety Report 7364421-X (Version None)
Quarter: 2011Q1

REPORT INFORMATION
  Report Type: 
  Country: None (occurrence: None)
  Receive Date: 20110321
  Receipt Date: 20100403
  Transmission Date: 20110831
  Serious: Yes (Other)
  Sender: FDA-Public Use
  Company Number: US-BAYER-201018284NA

PATIENT
  Sex: Female
  Weight: 78.458 kg

DRUGS (22)
  1. TRASYLOL [Suspect]
     Indication: TRICUSPID VALVE REPAIR
     Dosage: 1 ML, ONCE
     Route: 042
     Dates: start: 20050823, end: 20050823
  2. PHENYLEPHRINE HCL [Concomitant]
     Dosage: UNK
     Route: 042
     Dates: start: 20050823, end: 20050823
  3. MAGNESIUM SULFATE [Concomitant]
     Dosage: 2 G, UNK
     Route: 042
     Dates: start: 20050823, end: 20050823
  4. SUCRALFATE [Concomitant]
     Dosage: 100 MG, UNK
     Route: 048
     Dates: start: 20050823, end: 20050829
  5. ETOMIDATE [Concomitant]
     Dosage: 10 MCG
     Route: 042
     Dates: start: 20050823, end: 20050823
  6. TRASYLOL [Suspect]
     Indication: MITRAL VALVE REPAIR
     Dosage: 50 ML, Q1HR
     Route: 042
     Dates: start: 20050823, end: 20050823
  7. TRASYLOL [Suspect]
     Indication: VASCULAR PSEUDOANEURYSM
     Dosage: 200 ML, ONCE
     Route: 042
     Dates: start: 20050823, end: 20050823
  8. PROTONIX [Concomitant]
     Dosage: 40 MG, UNK
     Route: 048
     Dates: start: 20031001
  9. FORANE [Concomitant]
     Dosage: UNK
     Route: 045
     Dates: start: 20050823, end: 20050823
  10. COUMADIN [Concomitant]
     Dosage: 2 MG, UNK
     Route: 048
     Dates: start: 20030801
  11. HEPARIN SODIUM [Concomitant]
     Dosage: UNK
     Dates: start: 20050823, end: 20050823
  12. SODIUM BICARBONATE [Concomitant]
     Dosage: UNK
     Dates: start: 20050823, end: 20050823
  13. VERAPAMIL [Concomitant]
     Dosage: UNK
     Route: 042
     Dates: start: 20050823, end: 20050823
  14. MANNITOL [Concomitant]
     Dosage: 12.5 G, UNK
     Route: 042
     Dates: start: 20050823, end: 20050823
  15. SODIUM NITROPRUSSIDE [Concomitant]
     Dosage: 50 MG, UNK
     Route: 042
     Dates: start: 20050823, end: 20050823
  16. LEVOPHED [Concomitant]
     Dosage: 4 MG, UNK
     Dates: start: 20050823, end: 20050823
  17. TRASYLOL [Suspect]
     Indication: CARDIAC ABLATION
  18. BETAPACE [Concomitant]
     Dosage: 80 MG, BID
     Route: 048
     Dates: start: 20031001
  19. LOTENSIN [Concomitant]
     Dosage: 30 MG, QD
     Route: 048
     Dates: start: 20030801
  20. PANCURONIUM BROMIDE [Concomitant]
     Dosage: 10 MG, UNK
     Dates: start: 20050823, end: 20050823
  21. SUCCINYLCHOLINE CHLORIDE [Concomitant]
     Dosage: 100 MG, UNK
     Route: 042
     Dates: start: 20050823, end: 20050823
  22. FENTANYL [Concomitant]
     Dosage: 250 MG, UNK
     Route: 042
     Dates: start: 20050823, end: 20050823

REACTIONS (11)
  - RENAL FAILURE [None]
  - RENAL INJURY [None]
  - EMOTIONAL DISTRESS [None]
  - FEAR [None]
  - DEPRESSION [None]
  - STRESS [None]
  - ANXIETY [None]
  - RENAL IMPAIRMENT [None]
  - ANHEDONIA [None]
  - INJURY [None]
  - PAIN [None]
